FAERS Safety Report 15108615 (Version 2)
Quarter: 2018Q3

REPORT INFORMATION
  Report Type: Report from Study
  Country: IT (occurrence: IT)
  Receive Date: 20180705
  Receipt Date: 20180706
  Transmission Date: 20181010
  Serious: Yes (Hospitalization)
  Sender: FDA-Public Use
  Company Number: IT-TEVA-2018-IT-919751

PATIENT
  Age: 48 Year
  Sex: Female

DRUGS (6)
  1. LANOXIN 0,250 MG COMPRESSE [Concomitant]
     Indication: TRICUSPID VALVE INCOMPETENCE
     Route: 048
     Dates: start: 20090101
  2. NIFEREX 100 MG CAPSULE RIGIDE GASTRORESISTENTI [Concomitant]
     Indication: BLOOD IRON DECREASED
     Route: 048
     Dates: start: 20090101
  3. COUMADIN [Suspect]
     Active Substance: WARFARIN SODIUM
     Indication: ATRIAL FIBRILLATION
     Dosage: 1 DOSAGE FORMS DAILY;
     Route: 048
     Dates: start: 20090101, end: 20180411
  4. TORASEMIDE GERMED 10 MG COMPRESSE [Concomitant]
     Indication: HYPERTENSION
     Dosage: 1 DOSAGE FORMS DAILY;
     Route: 048
     Dates: start: 20090101
  5. EUTIROX 75 MICROGRAMMI COMPRESSE [Concomitant]
     Active Substance: LEVOTHYROXINE SODIUM
     Indication: HYPOTHYROIDISM
     Route: 048
     Dates: start: 20090101
  6. RAMIPRIL. [Suspect]
     Active Substance: RAMIPRIL
     Indication: HYPERTENSION
     Dosage: 1 DOSAGE FORMS DAILY;
     Route: 048
     Dates: start: 20090101, end: 20180411

REACTIONS (1)
  - Overdose [Recovered/Resolved]

NARRATIVE: CASE EVENT DATE: 20180412
